FAERS Safety Report 12712629 (Version 1)
Quarter: 2016Q3

REPORT INFORMATION
  Report Type: Spontaneous
  Country: US (occurrence: US)
  Receive Date: 20160902
  Receipt Date: 20160902
  Transmission Date: 20161109
  Serious: Yes (Other)
  Sender: FDA-Public Use
  Company Number: US-AMGEN-USASP2016115667

PATIENT
  Age: 47 Year
  Sex: Female

DRUGS (1)
  1. ENBREL [Suspect]
     Active Substance: ETANERCEPT
     Indication: PSORIASIS
     Dosage: 50 MG, QWK
     Route: 058
     Dates: start: 200709, end: 201608

REACTIONS (4)
  - Injection site pain [Recovered/Resolved]
  - Psoriasis [Recovered/Resolved]
  - Treatment failure [Recovered/Resolved]
  - Knee arthroplasty [Recovered/Resolved]

NARRATIVE: CASE EVENT DATE: 200709
